FAERS Safety Report 13900437 (Version 3)
Quarter: 2017Q3

REPORT INFORMATION
  Report Type: Spontaneous
  Country: US (occurrence: US)
  Receive Date: 20170824
  Receipt Date: 20170907
  Transmission Date: 20171127
  Serious: Yes (Life-Threatening, Hospitalization)
  Sender: FDA-Public Use
  Company Number: US-JNJFOC-20170819169

PATIENT
  Age: 43 Year
  Sex: Female
  Weight: 60.7 kg

DRUGS (21)
  1. POTASSIUM CHLORIDE. [Concomitant]
     Active Substance: POTASSIUM CHLORIDE
     Route: 048
  2. ACYCLOVIR. [Concomitant]
     Active Substance: ACYCLOVIR
     Route: 048
  3. CALCIUM [Concomitant]
     Active Substance: CALCIUM
     Dosage: CHEW 1.250 MG AND SWALLOW TWO TIMES DAILY
     Route: 048
  4. GABAPENTIN. [Concomitant]
     Active Substance: GABAPENTIN
     Route: 048
  5. CALCIUM CARBONATE. [Concomitant]
     Active Substance: CALCIUM CARBONATE
     Dosage: CHEW 1.250 MG AND SWALLOW TWO TIMES DAILY
     Route: 048
  6. FERROUS SULFATE. [Concomitant]
     Active Substance: FERROUS SULFATE
     Route: 048
  7. MORPHINE [Concomitant]
     Active Substance: MORPHINE
     Indication: PAIN
     Dosage: EXTENDED RELEASE 2 IN AM, 2 IN AFTERNOON, 1 IN PM WITH A 15 MG TABLET = 60-60-45 EACH DAY
     Route: 065
  8. USTEKINUMAB [Suspect]
     Active Substance: USTEKINUMAB
     Indication: PYODERMA GANGRENOSUM
     Route: 058
     Dates: start: 20131012
  9. USTEKINUMAB [Suspect]
     Active Substance: USTEKINUMAB
     Indication: BEHCET^S SYNDROME
     Route: 058
     Dates: start: 20131012
  10. LIDOCAINE. [Concomitant]
     Active Substance: LIDOCAINE
     Route: 061
  11. PROMETHAZINE [Concomitant]
     Active Substance: PROMETHAZINE\PROMETHAZINE HYDROCHLORIDE
     Indication: NAUSEA
     Dosage: 1 TABLET TWO TIME DAILY AS NEEDED
     Route: 048
  12. SENNA LAXATIVE [Concomitant]
     Active Substance: SENNOSIDES
     Dosage: OVER-THE-COUNTER DRUG (OTC) AS DIRECTED
     Route: 048
  13. USTEKINUMAB [Suspect]
     Active Substance: USTEKINUMAB
     Indication: PYODERMA GANGRENOSUM
     Route: 058
     Dates: start: 20131108
  14. USTEKINUMAB [Suspect]
     Active Substance: USTEKINUMAB
     Indication: BEHCET^S SYNDROME
     Route: 058
     Dates: start: 20131108
  15. USTEKINUMAB [Suspect]
     Active Substance: USTEKINUMAB
     Indication: BEHCET^S SYNDROME
     Route: 058
     Dates: start: 20130812
  16. USTEKINUMAB [Suspect]
     Active Substance: USTEKINUMAB
     Indication: PYODERMA GANGRENOSUM
     Route: 058
     Dates: start: 20130812
  17. CLOBETASOL [Concomitant]
     Active Substance: CLOBETASOL
     Indication: CONDITION AGGRAVATED
     Dosage: TO THE AFFECTED AREA TWO TIMES DAILY FOR 2 WEEKS, REPEAT EVERY 5 TO 6 WEEKS
     Route: 061
  18. FLUOXETINE [Concomitant]
     Active Substance: FLUOXETINE HYDROCHLORIDE
     Indication: DEPRESSION
     Route: 048
  19. DESONIDE. [Concomitant]
     Active Substance: DESONIDE
     Indication: CONDITION AGGRAVATED
     Dosage: TO THE AFFECTED AREA TWO TIMES DAILY FOR 2 WEEKS, REPEAT EVERY 5 TO 6 WEEKS
     Route: 061
  20. MORPHINE [Concomitant]
     Active Substance: MORPHINE
     Indication: PAIN
     Dosage: FIRST TRY OTHER OVER THE COUNTER PAIN RELIEVERS TO AVOID USING THE MORPHINE
     Route: 065
     Dates: start: 20130911
  21. PROMETHAZINE [Concomitant]
     Active Substance: PROMETHAZINE\PROMETHAZINE HYDROCHLORIDE
     Indication: VOMITING
     Dosage: 1 TABLET TWO TIME DAILY AS NEEDED
     Route: 048

REACTIONS (4)
  - Product use in unapproved indication [Unknown]
  - Respiratory failure [Recovered/Resolved]
  - Pneumonitis [Recovered/Resolved]
  - Off label use [Unknown]

NARRATIVE: CASE EVENT DATE: 201309
